FAERS Safety Report 6983775-7 (Version None)
Quarter: 2010Q3

REPORT INFORMATION
  Report Type: 
  Country: None (occurrence: None)
  Receive Date: 20100914
  Receipt Date: 20090126
  Transmission Date: 20110219
  Serious: Yes (Other)
  Sender: FDA-Public Use
  Company Number: US-WYE-H07352008

PATIENT
  Sex: Male
  Weight: 75.82 kg

DRUGS (4)
  1. MYLOTARG [Suspect]
     Indication: ACUTE MYELOID LEUKAEMIA
     Dosage: ONE DOSE RECEIVED
     Route: 042
     Dates: start: 20081202, end: 20081221
  2. BACTRIM [Concomitant]
     Indication: PNEUMOCYSTIS JIROVECI PNEUMONIA
     Dosage: ^DS^ DOSAGE FORM 2 TIMES PER 1 DAY
     Route: 048
     Dates: start: 20081129, end: 20081221
  3. CEFEPIME [Concomitant]
     Indication: FEBRILE NEUTROPENIA
     Dosage: 2G EVERY EIGHT HOURS
     Route: 042
     Dates: start: 20081125, end: 20081221
  4. VORICONAZOLE [Concomitant]
     Indication: FUNGAL INFECTION
     Route: 048
     Dates: start: 20081124, end: 20081221

REACTIONS (1)
  - THROMBOCYTOPENIA [None]
